FAERS Safety Report 9331143 (Version 2)
Quarter: 2013Q4

REPORT INFORMATION
  Report Type: Spontaneous
  Country: US (occurrence: US)
  Receive Date: 20130605
  Receipt Date: 20131119
  Transmission Date: 20140711
  Serious: Yes (Death, Hospitalization)
  Sender: FDA-Public Use
  Company Number: US-B.I. PHARMACEUTICALS,INC./RIDGEFIELD-2013-BI-15747BP

PATIENT
  Age: 78 Year
  Sex: Female
  Weight: 90.72 kg

DRUGS (13)
  1. PRADAXA [Suspect]
     Indication: ANTICOAGULANT THERAPY
     Dosage: 300 MG
     Dates: start: 20101215
  2. PRADAXA [Suspect]
     Indication: ATRIAL FIBRILLATION
  3. TOPROL XL [Concomitant]
     Dosage: 200 MG
     Route: 048
  4. VERAPAMIL [Concomitant]
     Dosage: 360 MG
     Route: 048
  5. ASPIRIN [Concomitant]
     Dosage: 81 MG
     Route: 048
  6. LASIX [Concomitant]
     Dosage: 80 MG
     Route: 048
  7. COMBIVENT [Concomitant]
     Route: 055
  8. FISH OIL [Concomitant]
     Dosage: 2 G
     Route: 048
  9. POTASSIUM CHLORIDE [Concomitant]
     Dosage: 40 MEQ
     Route: 048
  10. SYMBICORT [Concomitant]
  11. ATIVAN [Concomitant]
     Route: 048
  12. COLACE [Concomitant]
     Dosage: 100 MG
     Route: 048
  13. GUAIFENESIN [Concomitant]
     Dosage: 600 MG
     Route: 048

REACTIONS (3)
  - Cerebrovascular accident [Fatal]
  - Upper gastrointestinal haemorrhage [Unknown]
  - Anaemia [Unknown]
